FAERS Safety Report 7381557-8 (Version None)
Quarter: 2011Q1

REPORT INFORMATION
  Report Type: 
  Country: None (occurrence: None)
  Receive Date: 20110329
  Receipt Date: 20110315
  Transmission Date: 20110831
  Serious: Yes (Hospitalization, Other)
  Sender: FDA-Public Use
  Company Number: US-CELGENEUS-163-20785-10120468

PATIENT
  Sex: Female
  Weight: 56.6 kg

DRUGS (5)
  1. PREDNISONE [Concomitant]
     Route: 065
  2. THALOMID [Suspect]
     Indication: MULTIPLE MYELOMA
     Dosage: 50 MILLIGRAM
     Route: 048
     Dates: start: 20091001, end: 20100601
  3. ATENOLOL [Concomitant]
     Dosage: 25 MILLIGRAM
     Route: 065
  4. ACETAMINOPHEN [Concomitant]
     Dosage: 650 MILLIGRAM
     Route: 065
  5. PEPCID [Concomitant]
     Dosage: 40 MILLIGRAM
     Route: 048

REACTIONS (3)
  - SPINAL COMPRESSION FRACTURE [None]
  - PARAESTHESIA [None]
  - DRUG INEFFECTIVE [None]
